FAERS Safety Report 22198385 (Version 1)
Quarter: 2023Q2

REPORT INFORMATION
  Report Type: Report from Study
  Country: DK (occurrence: DK)
  Receive Date: 20230411
  Receipt Date: 20230411
  Transmission Date: 20230721
  Serious: Yes (Other)
  Sender: FDA-Public Use
  Company Number: DK-MYLANLABS-2023M1038165

PATIENT
  Age: 61 Year
  Sex: Female

DRUGS (3)
  1. OXCARBAZEPINE [Suspect]
     Active Substance: OXCARBAZEPINE
     Indication: Prophylaxis
     Dosage: 2400 MILLIGRAM (MEDICATION BEFORE LOADING)
     Route: 048
  2. GABAPENTIN [Suspect]
     Active Substance: GABAPENTIN
     Indication: Prophylaxis
     Dosage: 3600 MILLIGRAM (MEDICATION BEFORE LOADING)
     Route: 048
  3. AMITRIPTYLINE [Suspect]
     Active Substance: AMITRIPTYLINE
     Indication: Prophylaxis
     Dosage: 100 MILLIGRAM (MEDICATION BEFORE LOADING)
     Route: 048

REACTIONS (1)
  - Drug ineffective [Unknown]
